FAERS Safety Report 7598568-X (Version None)
Quarter: 2011Q3

REPORT INFORMATION
  Report Type: 
  Country: None (occurrence: None)
  Receive Date: 20110708
  Receipt Date: 20110629
  Transmission Date: 20111222
  Serious: Yes (Hospitalization, Other)
  Sender: FDA-Public Use
  Company Number: US-ASTRAZENECA-2011SE39065

PATIENT
  Age: 70 Year
  Sex: Female

DRUGS (2)
  1. PRILOSEC [Suspect]
     Indication: GASTRITIS
     Route: 048
     Dates: start: 20060101, end: 20110601
  2. NEXIUM [Suspect]
     Indication: GASTRITIS
     Dosage: TOOK 2-3 CAPSULE FROM A FRIEND
     Route: 048
     Dates: start: 20110601

REACTIONS (9)
  - BREAST OPERATION [None]
  - VOMITING [None]
  - DRUG INEFFECTIVE [None]
  - CHEMOTHERAPY [None]
  - WRONG DRUG ADMINISTERED [None]
  - NEOPLASM MALIGNANT [None]
  - NASOPHARYNGITIS [None]
  - GASTRITIS [None]
  - NAUSEA [None]
